FAERS Safety Report 22057369 (Version 1)
Quarter: 2023Q1

REPORT INFORMATION
  Report Type: Spontaneous
  Country: US (occurrence: US)
  Receive Date: 20230303
  Receipt Date: 20230303
  Transmission Date: 20230418
  Serious: No
  Sender: FDA-Public Use
  Company Number: US-ELI_LILLY_AND_COMPANY-US202303001045

PATIENT
  Sex: Female

DRUGS (4)
  1. HUMALOG [Suspect]
     Active Substance: INSULIN LISPRO
     Indication: Type 3 diabetes mellitus
     Dosage: 8 U, DAILY
     Route: 058
     Dates: start: 202212
  2. HUMALOG [Suspect]
     Active Substance: INSULIN LISPRO
     Indication: Type 3 diabetes mellitus
     Dosage: 8 U, DAILY
     Route: 058
     Dates: start: 202212
  3. HUMALOG [Suspect]
     Active Substance: INSULIN LISPRO
     Dosage: 8 U, DAILY
     Route: 058
  4. LANTUS [Concomitant]
     Active Substance: INSULIN GLARGINE
     Indication: Type 3 diabetes mellitus
     Dosage: 20 U

REACTIONS (2)
  - Blood glucose increased [Not Recovered/Not Resolved]
  - Incorrect dose administered [Unknown]
